FAERS Safety Report 25518789 (Version 1)
Quarter: 2025Q3

REPORT INFORMATION
  Report Type: Spontaneous
  Country: QA (occurrence: QA)
  Receive Date: 20250704
  Receipt Date: 20250704
  Transmission Date: 20251020
  Serious: Yes (Other)
  Sender: RANBAXY
  Company Number: QA-SUN PHARMACEUTICAL INDUSTRIES LTD-2025RR-515257

PATIENT
  Age: 53 Year
  Sex: Male

DRUGS (2)
  1. NIFEDIPINE [Interacting]
     Active Substance: NIFEDIPINE
     Indication: Hypertension
     Route: 048
  2. TIZANIDINE [Interacting]
     Active Substance: TIZANIDINE
     Indication: Back pain
     Route: 048

REACTIONS (4)
  - Drug interaction [Unknown]
  - Dizziness [Unknown]
  - Hyperhidrosis [Unknown]
  - Dizziness [Unknown]
